FAERS Safety Report 7861084-1 (Version None)
Quarter: 2011Q4

REPORT INFORMATION
  Report Type: 
  Country: None (occurrence: None)
  Receive Date: 20111027
  Receipt Date: 20111021
  Transmission Date: 20120403
  Serious: Yes (Death, Hospitalization, Other)
  Sender: FDA-Public Use
  Company Number: IE-B.I. PHARMACEUTICALS,INC./RIDGEFIELD-2010-UK-00996UK

PATIENT
  Sex: Female

DRUGS (2)
  1. PRADAXA [Suspect]
     Dosage: 110 MG
     Route: 048
  2. PRADAXA [Suspect]
     Indication: CEREBROVASCULAR ACCIDENT PROPHYLAXIS
     Dosage: 220 MG
     Route: 048

REACTIONS (11)
  - WEIGHT DECREASED [None]
  - HEAD INJURY [None]
  - FALL [None]
  - CEREBROVASCULAR ACCIDENT [None]
  - SUBDURAL HAEMORRHAGE [None]
  - LOSS OF CONSCIOUSNESS [None]
  - PELVIC FRACTURE [None]
  - CHEST PAIN [None]
  - ANGINA PECTORIS [None]
  - CONTUSION [None]
  - CARDIAC DISORDER [None]
